FAERS Safety Report 6849706-5 (Version None)
Quarter: 2010Q3

REPORT INFORMATION
  Report Type: 
  Country: None (occurrence: None)
  Receive Date: 20100716
  Receipt Date: 20071105
  Transmission Date: 20110219
  Serious: No
  Sender: FDA-Public Use
  Company Number: US-PFIZER INC-2007083441

PATIENT
  Sex: Female
  Weight: 50.8 kg

DRUGS (3)
  1. CHANTIX [Suspect]
     Indication: SMOKING CESSATION THERAPY
     Route: 048
     Dates: start: 20070815
  2. ANTIBIOTICS [Concomitant]
     Indication: LUNG DISORDER
  3. ALL OTHER THERAPEUTIC PRODUCTS [Concomitant]
     Indication: ULCER

REACTIONS (3)
  - INFLUENZA LIKE ILLNESS [None]
  - NAUSEA [None]
  - VOMITING [None]
